FAERS Safety Report 4850900-3 (Version None)
Quarter: 2005Q4

REPORT INFORMATION
  Report Type: 
  Country: None (occurrence: None)
  Receive Date: 20051212
  Receipt Date: 20051117
  Transmission Date: 20060501
  Serious: Yes (Other)
  Sender: FDA-Public Use
  Company Number: BE-GLAXOSMITHKLINE-B0401156A

PATIENT
  Age: 50 Year
  Sex: Male
  Weight: 65 kg

DRUGS (7)
  1. CLAMOXYL [Suspect]
     Indication: PAIN
     Dosage: 500MG THREE TIMES PER DAY
     Route: 048
     Dates: start: 20051031, end: 20051031
  2. CRESTOR [Concomitant]
     Indication: LIPIDS ABNORMAL
     Dosage: 10MG PER DAY
     Dates: start: 20051124
  3. PROTHIADEN [Concomitant]
     Dosage: 75MG PER DAY
     Dates: start: 19960101
  4. DAFALGAN CODEINE [Concomitant]
  5. STILNOCT [Concomitant]
  6. EMCONCOR [Concomitant]
     Indication: HYPERTENSION
     Dates: start: 20051019
  7. TRILAFON [Concomitant]
     Dosage: 2MG PER DAY
     Dates: start: 19960101

REACTIONS (8)
  - ANAPHYLACTIC REACTION [None]
  - ANGIONEUROTIC OEDEMA [None]
  - DYSPNOEA [None]
  - NAUSEA [None]
  - SKIN WARM [None]
  - SPEECH DISORDER DEVELOPMENTAL [None]
  - SWELLING FACE [None]
  - THROAT TIGHTNESS [None]
